FAERS Safety Report 7442954-5 (Version None)
Quarter: 2011Q2

REPORT INFORMATION
  Report Type: 
  Country: None (occurrence: None)
  Receive Date: 20110425
  Receipt Date: 20110425
  Transmission Date: 20111010
  Serious: Yes (Hospitalization)
  Sender: FDA-Public Use
  Company Number: None

PATIENT
  Sex: Female
  Weight: 95 kg

DRUGS (2)
  1. PRADAXA [Suspect]
     Indication: ATRIAL FIBRILLATION
     Dosage: 150 MG TWICE DAILY PO
     Route: 048
     Dates: start: 20110214, end: 20110301
  2. PRADAXA [Suspect]
     Indication: ATRIAL FIBRILLATION
     Dosage: 150 MG TWICE DAILY PO
     Route: 048
     Dates: start: 20110401, end: 20110421

REACTIONS (4)
  - DRUG DOSE OMISSION [None]
  - LACERATION [None]
  - WOUND HAEMORRHAGE [None]
  - RECTAL HAEMORRHAGE [None]
